FAERS Safety Report 22074007 (Version 5)
Quarter: 2023Q2

REPORT INFORMATION
  Report Type: Spontaneous
  Country: US (occurrence: US)
  Receive Date: 20230308
  Receipt Date: 20230629
  Transmission Date: 20230721
  Serious: No
  Sender: FDA-Public Use
  Company Number: US-PFIZER INC-202300091780

PATIENT
  Age: 8 Year
  Sex: Female

DRUGS (1)
  1. GENOTROPIN [Suspect]
     Active Substance: SOMATROPIN
     Indication: Growth hormone deficiency
     Dosage: 0.6 MG
     Dates: start: 202302

REACTIONS (4)
  - Device malfunction [Unknown]
  - Device delivery system issue [Unknown]
  - Device leakage [Unknown]
  - Poor quality device used [Unknown]
